FAERS Safety Report 4484412-6 (Version None)
Quarter: 2004Q3

REPORT INFORMATION
  Report Type: 
  Country: None (occurrence: None)
  Receive Date: 20040921
  Receipt Date: 20040427
  Transmission Date: 20050211
  Serious: Yes (Death)
  Sender: FDA-Public Use
  Company Number: 163-20785-04040362

PATIENT
  Age: 16 Year
  Sex: Female

DRUGS (1)
  1. THALOMID [Suspect]
     Indication: ADRENOCORTICAL CARCINOMA
     Dosage: 400 MG, QHS, ORAL
     Route: 048
     Dates: start: 20040202, end: 20040412

REACTIONS (2)
  - DEATH [None]
  - DISEASE PROGRESSION [None]
